FAERS Safety Report 6201614-9 (Version None)
Quarter: 2009Q2

REPORT INFORMATION
  Report Type: 
  Country: None (occurrence: None)
  Receive Date: 20090526
  Receipt Date: 20090518
  Transmission Date: 20091009
  Serious: Yes (Hospitalization)
  Sender: FDA-Public Use
  Company Number: US-WYE-H09389709

PATIENT
  Sex: Male
  Weight: 64.07 kg

DRUGS (2)
  1. TORISEL [Suspect]
     Indication: RENAL CELL CARCINOMA
     Route: 042
     Dates: start: 20090401
  2. ZOMETA [Concomitant]
     Dosage: DOSE NOT PROVIDED; FREQUENCY DAILY
     Route: 048

REACTIONS (3)
  - DYSPNOEA [None]
  - LUNG INFILTRATION [None]
  - OXYGEN SATURATION DECREASED [None]
